FAERS Safety Report 10870427 (Version 2)
Quarter: 2015Q3

REPORT INFORMATION
  Report Type: Report from Study
  Country: US (occurrence: None)
  Receive Date: 20150219
  Receipt Date: 20150702
  Transmission Date: 20151125
  Serious: Yes (Hospitalization)
  Sender: FDA-Public Use
  Company Number: US-2015VAL000154

PATIENT
  Age: 54 Year
  Sex: Female
  Weight: 102 kg

DRUGS (17)
  1. PROZAC [Concomitant]
     Active Substance: FLUOXETINE HYDROCHLORIDE
  2. ZESTRIL (LISINOPRIL) [Concomitant]
  3. NEURONTIN [Concomitant]
     Active Substance: GABAPENTIN
  4. VITAMIN D3 [Concomitant]
     Active Substance: CHOLECALCIFEROL
  5. GILENYA [Suspect]
     Active Substance: FINGOLIMOD HYDROCHLORIDE
     Indication: MULTIPLE SCLEROSIS
     Route: 048
     Dates: start: 20141125
  6. NEXIUM [Concomitant]
     Active Substance: ESOMEPRAZOLE MAGNESIUM
  7. FLUOXETINE (FLUOXETINE) [Concomitant]
     Active Substance: FLUOXETINE HYDROCHLORIDE
  8. GABAPENTIN (GABAPENTIN) [Concomitant]
     Active Substance: GABAPENTIN
  9. CLONAZEPAM (CLONAZEPAM) [Concomitant]
     Active Substance: CLONAZEPAM
  10. PRINIVIL (LISINOPRIL DIHYDRATE) [Concomitant]
  11. ERYTHROMYCIN BASE [Suspect]
     Active Substance: ERYTHROMYCIN
     Indication: PRODUCT USED FOR UNKNOWN INDICATION
     Route: 048
  12. CALCIUM CARBONATE (CALCIUM CARBONATE) [Concomitant]
  13. MULTIVITAMIN (ASCORBIC ACID, CALCIUM PANTOTHENATE, ERGOCALCIFEROL, NICOTINAMIDE, PYRIDOXINE HYDROCHLORIDE, RETINOL, RIBOFLAVIN, THIAMINE HYDROCHLORIDE) [Concomitant]
  14. ERY (ERYTHROMYCIN) [Concomitant]
  15. AMANTADINE HCL (AMANTADINE HYDROCHLORIDE) TABLET [Concomitant]
  16. LOPRESSOR [Suspect]
     Active Substance: METOPROLOL TARTRATE
     Indication: HYPERTENSION
     Route: 048
     Dates: end: 20141127
  17. KLONOPIN [Concomitant]
     Active Substance: CLONAZEPAM

REACTIONS (6)
  - Blood pressure diastolic increased [None]
  - Sinus bradycardia [None]
  - Peripheral swelling [None]
  - Drug interaction [None]
  - Joint swelling [None]
  - Dizziness [None]

NARRATIVE: CASE EVENT DATE: 20141125
